FAERS Safety Report 4276996-8 (Version None)
Quarter: 2004Q1

REPORT INFORMATION
  Report Type: 
  Country: None (occurrence: None)
  Receive Date: 20040109
  Receipt Date: 20041230
  Transmission Date: 20041129
  Serious: Yes (Other)
  Sender: FDA-Public Use
  Company Number: 12452967

PATIENT
  Sex: Female

DRUGS (1)
  1. METHOTREXATE [Suspect]
     Indication: RHEUMATOID ARTHRITIS
     Dosage: 1 DOSAGE FORM, 1 WEEK
     Dates: start: 19911001

REACTIONS (13)
  - ANAEMIA [None]
  - CORNEAL ULCER [None]
  - CREATININE RENAL CLEARANCE DECREASED [None]
  - GRANULOCYTE COUNT DECREASED [None]
  - HAEMOGLOBIN INCREASED [None]
  - HEPATITIS [None]
  - LYMPHOCYTE COUNT DECREASED [None]
  - MEAN CELL VOLUME DECREASED [None]
  - NEPHRITIS [None]
  - PANCREATITIS [None]
  - PNEUMONIA [None]
  - VARICELLA [None]
  - WHITE BLOOD CELL COUNT DECREASED [None]
